FAERS Safety Report 5306227-9 (Version None)
Quarter: 2007Q1

REPORT INFORMATION
  Report Type: 
  Country: None (occurrence: None)
  Receive Date: 20070201
  Receipt Date: 20061204
  Transmission Date: 20070707
  Serious: No
  Sender: FDA-Public Use
  Company Number: 2006PV026323

PATIENT
  Sex: Female

DRUGS (2)
  1. BYETTA [Suspect]
     Indication: DIABETES MELLITUS
     Dosage: 5 MCG; SC
     Route: 058
     Dates: start: 20061130
  2. METFORMIN HCL [Concomitant]

REACTIONS (5)
  - DECREASED APPETITE [None]
  - DYSPEPSIA [None]
  - FEELING ABNORMAL [None]
  - PAIN [None]
  - VOMITING [None]
